FAERS Safety Report 25333942 (Version 5)
Quarter: 2025Q3

REPORT INFORMATION
  Report Type: Report from Study
  Country: EU (occurrence: EU)
  Receive Date: 20250520
  Receipt Date: 20250724
  Transmission Date: 20251021
  Serious: Yes (Other)
  Sender: BEIGENE
  Company Number: EU-BEIGENE-BGN-2025-007776

PATIENT
  Age: 77 Year

DRUGS (6)
  1. BRUKINSA [Suspect]
     Active Substance: ZANUBRUTINIB
     Indication: Chronic lymphocytic leukaemia
     Dosage: 320 MG,QD
  2. BRUKINSA [Suspect]
     Active Substance: ZANUBRUTINIB
     Dosage: 320 MG,QD
     Route: 048
  3. BRUKINSA [Suspect]
     Active Substance: ZANUBRUTINIB
     Dosage: 320 MG,QD
     Route: 048
  4. BRUKINSA [Suspect]
     Active Substance: ZANUBRUTINIB
     Dosage: 320 MG,QD
  5. BRUKINSA [Suspect]
     Active Substance: ZANUBRUTINIB
     Dosage: 3 TABLETS PER DAY
  6. BRUKINSA [Suspect]
     Active Substance: ZANUBRUTINIB
     Dosage: 3 TABLETS PER DAY

REACTIONS (1)
  - Hepatic cytolysis [Recovered/Resolved]
